FAERS Safety Report 6739228-4 (Version None)
Quarter: 2010Q2

REPORT INFORMATION
  Report Type: 
  Country: None (occurrence: None)
  Receive Date: 20100524
  Receipt Date: 20100524
  Transmission Date: 20101027
  Serious: No
  Sender: FDA-Public Use
  Company Number: None

PATIENT
  Age: 64 Year
  Sex: Female
  Weight: 61.4624 kg

DRUGS (3)
  1. CETIRIZINE HCL [Suspect]
     Indication: ECZEMA
     Dosage: 10 MG QD ORAL
     Route: 048
     Dates: start: 20080501, end: 20081001
  2. CETIRIZINE HCL [Suspect]
     Indication: HYPERSENSITIVITY
     Dosage: 10 MG QD ORAL
     Route: 048
     Dates: start: 20080501, end: 20081001
  3. CETIRIZINE HCL [Suspect]
     Indication: PRURITUS
     Dosage: 10 MG QD ORAL
     Route: 048
     Dates: start: 20080501, end: 20081001

REACTIONS (2)
  - DRUG EFFECT DECREASED [None]
  - PRODUCT SUBSTITUTION ISSUE [None]
